FAERS Safety Report 25503466 (Version 2)
Quarter: 2025Q4

REPORT INFORMATION
  Report Type: Spontaneous
  Country: JP (occurrence: JP)
  Receive Date: 20250702
  Receipt Date: 20251130
  Transmission Date: 20260118
  Serious: Yes (Hospitalization)
  Sender: MERCK SHARP & DOHME LLC
  Company Number: JP-009507513-2299558

PATIENT
  Age: 8 Decade
  Sex: Female

DRUGS (1)
  1. KEYTRUDA [Suspect]
     Active Substance: PEMBROLIZUMAB
     Indication: Triple negative breast cancer
     Route: 041
     Dates: end: 202504

REACTIONS (7)
  - Hypothalamo-pituitary disorder [Unknown]
  - Altered state of consciousness [Unknown]
  - Pancreatitis [Unknown]
  - Diarrhoea [Unknown]
  - Hypothyroidism [Unknown]
  - Generalised oedema [Unknown]
  - Hypoglycaemia [Unknown]

NARRATIVE: CASE EVENT DATE: 20250101
